FAERS Safety Report 4355603-X (Version None)
Quarter: 2004Q2

REPORT INFORMATION
  Report Type: 
  Country: None (occurrence: None)
  Receive Date: 20040510
  Receipt Date: 20040503
  Transmission Date: 20050107
  Serious: Yes (Life-Threatening, Hospitalization)
  Sender: FDA-Public Use
  Company Number: 2004007870

PATIENT
  Age: 20 Year
  Sex: Female

DRUGS (2)
  1. SEROXAT [Suspect]
     Dosage: 40TAB SINGLE DOSE
     Route: 048
     Dates: start: 20040501, end: 20040501
  2. ASPIRIN [Concomitant]
     Route: 048
     Dates: start: 20040501, end: 20040501

REACTIONS (4)
  - FATIGUE [None]
  - INTENTIONAL OVERDOSE [None]
  - MYDRIASIS [None]
  - SUICIDE ATTEMPT [None]
